FAERS Safety Report 5670132-9 (Version None)
Quarter: 2008Q1

REPORT INFORMATION
  Report Type: 
  Country: None (occurrence: None)
  Receive Date: 20080312
  Receipt Date: 20080228
  Transmission Date: 20080703
  Serious: Yes (Hospitalization, Other)
  Sender: FDA-Public Use
  Company Number: TPG2008A00094

PATIENT
  Age: 70 Year
  Sex: Female

DRUGS (8)
  1. ACTOS [Suspect]
     Indication: TYPE 2 DIABETES MELLITUS
     Dosage: 15 MG (15 MG, 1 - 2) PER ORAL, 15 MG (15 MG, 1 IN 1 D), PER ORAL
     Route: 048
     Dates: start: 20050901, end: 20070401
  2. CORTISONE ACETATE [Suspect]
     Route: 048
  3. VERAPAMIL [Concomitant]
  4. CANDESARTAN CILEXETIL [Concomitant]
  5. HYDROCHLOROTHIAZIDE [Concomitant]
  6. ACETYLSALICYLIC ACID SRT [Concomitant]
  7. CALCIUM (CALCIUM) [Concomitant]
  8. VITAMIN D [Concomitant]

REACTIONS (15)
  - ANAEMIA [None]
  - CHRONIC MYELOMONOCYTIC LEUKAEMIA [None]
  - DYSPNOEA [None]
  - GENERAL PHYSICAL HEALTH DETERIORATION [None]
  - HERPES ZOSTER [None]
  - IMPAIRED HEALING [None]
  - NECROSIS [None]
  - OEDEMA PERIPHERAL [None]
  - POST HERPETIC NEURALGIA [None]
  - RIGHT VENTRICULAR FAILURE [None]
  - SCLERITIS [None]
  - SPINAL FRACTURE [None]
  - SPLENOMEGALY [None]
  - TENDON RUPTURE [None]
  - WEGENER'S GRANULOMATOSIS [None]
